FAERS Safety Report 7812211-3 (Version None)
Quarter: 2011Q4

REPORT INFORMATION
  Report Type: 
  Country: None (occurrence: None)
  Receive Date: 20111013
  Receipt Date: 20111003
  Transmission Date: 20120403
  Serious: Yes (Other)
  Sender: FDA-Public Use
  Company Number: US-ELI_LILLY_AND_COMPANY-US201110000718

PATIENT
  Sex: Male

DRUGS (4)
  1. HUMALOG [Suspect]
     Dosage: 50 U, OTHER
     Dates: start: 20040101
  2. HUMALOG [Suspect]
     Dosage: 30 U, EACH EVENING
     Dates: start: 20040101
  3. HUMALOG [Suspect]
     Dosage: UNK UNK, PRN
     Dates: start: 20040101
  4. HUMALOG [Suspect]
     Indication: DIABETES MELLITUS
     Dosage: 50 U, EACH MORNING
     Dates: start: 20040101

REACTIONS (4)
  - STRESS [None]
  - BLOOD GLUCOSE INCREASED [None]
  - THROAT CANCER [None]
  - INCORRECT PRODUCT STORAGE [None]
